FAERS Safety Report 4875023-9 (Version None)
Quarter: 2006Q1

REPORT INFORMATION
  Report Type: 
  Country: None (occurrence: None)
  Receive Date: 20060105
  Receipt Date: 20051222
  Transmission Date: 20060701
  Serious: Yes (Hospitalization)
  Sender: FDA-Public Use
  Company Number: SUSI-2005-00948

PATIENT
  Age: 42 Year
  Sex: Male
  Weight: 104.3 kg

DRUGS (2)
  1. EQUETRO [Suspect]
     Indication: MANIA
     Dosage: 200 MG, 2X/DAY:BID
     Dates: start: 20050930, end: 20051020
  2. LITHIUM   /0003372/(LITHIUM CARBONATE) [Suspect]
     Indication: MANIA
     Dosage: 500 MG, 3X/DAY;TID
     Dates: start: 20051003

REACTIONS (1)
  - ANAPHYLACTIC REACTION [None]
